FAERS Safety Report 19849332 (Version 2)
Quarter: 2021Q3

REPORT INFORMATION
  Report Type: Report from Study
  Country: NO (occurrence: NO)
  Receive Date: 20210918
  Receipt Date: 20210923
  Transmission Date: 20211014
  Serious: Yes (Hospitalization)
  Sender: FDA-Public Use
  Company Number: NO-ROCHE-2911309

PATIENT
  Age: 74 Year
  Sex: Female
  Weight: 54 kg

DRUGS (17)
  1. L?SERINE [Concomitant]
     Route: 048
     Dates: start: 202006
  2. FLAGYL [Concomitant]
     Active Substance: METRONIDAZOLE\METRONIDAZOLE HYDROCHLORIDE
     Dates: start: 20210820
  3. CALSIUM [Concomitant]
     Dates: start: 2020
  4. OVESTERIN [Concomitant]
     Active Substance: ESTRIOL
     Indication: OESTROGEN DEFICIENCY
     Dates: start: 2018
  5. OXYNORM [Concomitant]
     Active Substance: OXYCODONE HYDROCHLORIDE
     Dates: start: 20210728
  6. CIPROFLOXACIN. [Concomitant]
     Active Substance: CIPROFLOXACIN
     Indication: LARGE INTESTINE PERFORATION
     Dates: start: 20210820
  7. LOPERAMID [Concomitant]
     Active Substance: LOPERAMIDE
     Indication: DIARRHOEA
     Dates: start: 201507
  8. ATEZOLIZUMAB. [Suspect]
     Active Substance: ATEZOLIZUMAB
     Indication: CERVIX CARCINOMA
     Dosage: ON 19/AUG/2021 HE ADMINISTERED THE LAST DOSE PRIOR TO SERIOUS ADVERSE EVENT.
     Route: 042
     Dates: start: 20210618
  9. PARACETAMOL [Concomitant]
     Active Substance: ACETAMINOPHEN
     Indication: PAIN
     Dates: start: 2015
  10. HYLO DUAL [Concomitant]
     Indication: DRY EYE
     Dates: start: 2019
  11. CRANBERRY EXTRACT [Concomitant]
     Active Substance: CRANBERRY
     Route: 048
     Dates: start: 2020
  12. IDOFORM [Concomitant]
     Route: 048
     Dates: start: 202104
  13. MENAQUINONE?7 [Concomitant]
     Route: 048
     Dates: start: 2020
  14. IBUX [Concomitant]
     Active Substance: IBUPROFEN
     Route: 048
     Dates: start: 20210707
  15. OXYCONTIN [Concomitant]
     Active Substance: OXYCODONE HYDROCHLORIDE
     Dates: start: 20210728
  16. MAGNESIUM [Concomitant]
     Active Substance: MAGNESIUM
     Route: 048
     Dates: start: 2020
  17. ZOPICLONE [Concomitant]
     Active Substance: ZOPICLONE
     Indication: INSOMNIA
     Dates: start: 20210624

REACTIONS (1)
  - Pyrexia [Recovered/Resolved]

NARRATIVE: CASE EVENT DATE: 20210828
